FAERS Safety Report 24986313 (Version 2)
Quarter: 2025Q1

REPORT INFORMATION
  Report Type: Report from Study
  Country: US (occurrence: US)
  Receive Date: 20250219
  Receipt Date: 20250318
  Transmission Date: 20250409
  Serious: No
  Sender: SUNOVION
  Company Number: US-SUMITOMO PHARMA SWITZERLAND GMBH-2025SPA001471

PATIENT

DRUGS (4)
  1. ORGOVYX [Suspect]
     Active Substance: RELUGOLIX
     Indication: Prostate cancer
     Route: 048
  2. ORGOVYX [Suspect]
     Active Substance: RELUGOLIX
     Dosage: 120 MG, QD
     Route: 048
     Dates: start: 20250128
  3. ORGOVYX [Suspect]
     Active Substance: RELUGOLIX
     Dosage: 120 MG, QD
     Route: 048
     Dates: start: 202502
  4. XTANDI [Suspect]
     Active Substance: ENZALUTAMIDE
     Indication: Product used for unknown indication
     Route: 065

REACTIONS (10)
  - Dizziness postural [Unknown]
  - Fall [Unknown]
  - Wrist fracture [Unknown]
  - Joint injury [Unknown]
  - Limb injury [Unknown]
  - Adverse drug reaction [Unknown]
  - Glucose tolerance impaired [Unknown]
  - Hot flush [Recovered/Resolved]
  - Back pain [Recovered/Resolved]
  - Pain in extremity [Unknown]
